FAERS Safety Report 9587818 (Version 1)
Quarter: 2013Q4

REPORT INFORMATION
  Report Type: Spontaneous
  Country: JP (occurrence: JP)
  Receive Date: 20131003
  Receipt Date: 20131003
  Transmission Date: 20140711
  Serious: Yes (Other)
  Sender: FDA-Public Use
  Company Number: JP-PFIZER INC-2013282051

PATIENT
  Age: 63 Year
  Sex: Male

DRUGS (7)
  1. HALOPERIDOL [Suspect]
     Indication: SCHIZOPHRENIA
     Dosage: 3 MG/DAY
  2. HALOPERIDOL [Suspect]
     Dosage: 6 MG/DAY
  3. DIAZEPAM [Concomitant]
     Indication: SCHIZOPHRENIA
     Dosage: 4 MG/DAY
  4. BIPERIDEN [Concomitant]
     Indication: SCHIZOPHRENIA
     Dosage: 2 MG/DAY
  5. CHLORPROMAZINE [Concomitant]
     Indication: SCHIZOPHRENIA
     Dosage: 100 MG/DAY
  6. LEVODOPA [Concomitant]
     Indication: PARKINSONISM
     Dosage: 200 MG/DAY
  7. BENSERAZIDE HYDROCHLORIDE [Concomitant]
     Indication: PARKINSONISM
     Dosage: 50 MG/DAY

REACTIONS (2)
  - Hypothermia [Recovered/Resolved]
  - Bradycardia [Recovering/Resolving]
